FAERS Safety Report 8790820 (Version 2)
Quarter: 2013Q1

REPORT INFORMATION
  Report Type: Spontaneous
  Country: GB (occurrence: None)
  Receive Date: 20120907
  Receipt Date: 20121019
  Transmission Date: 20140127
  Serious: Yes (Hospitalization)
  Sender: FDA-Public Use
  Company Number: 2012-01313

PATIENT
  Age: 43 Year
  Sex: Female
  Weight: 140 kg

DRUGS (5)
  1. QUETIAPINE [Suspect]
     Indication: BIPOLAR DISORDER
     Route: 048
     Dates: start: 2006, end: 20120608
  2. DIAZEPAM [Concomitant]
  3. FUROSEMIDE [Concomitant]
  4. PAROXETINE [Concomitant]
  5. ZOLPIDEM [Concomitant]

REACTIONS (4)
  - Congestive cardiomyopathy [None]
  - Ejection fraction decreased [None]
  - Exercise tolerance decreased [None]
  - Cardiac failure [None]
